FAERS Safety Report 9837786 (Version 1)
Quarter: 2014Q1

REPORT INFORMATION
  Report Type: Spontaneous
  Country: US (occurrence: US)
  Receive Date: 20140123
  Receipt Date: 20140123
  Transmission Date: 20141002
  Serious: Yes (Other)
  Sender: FDA-Public Use
  Company Number: 2014SP000127

PATIENT
  Age: 18 Year
  Sex: Female

DRUGS (3)
  1. LATUDA [Suspect]
     Indication: BIPOLAR I DISORDER
     Route: 048
  2. PROZAC [Concomitant]
     Indication: OBSESSIVE-COMPULSIVE DISORDER
  3. ZIPRASIDONE [Concomitant]

REACTIONS (1)
  - Electrocardiogram QT prolonged [Unknown]
